FAERS Safety Report 13253875 (Version 1)
Quarter: 2017Q1

REPORT INFORMATION
  Report Type: Spontaneous
  Country: CN (occurrence: CN)
  Receive Date: 20170220
  Receipt Date: 20170220
  Transmission Date: 20170428
  Serious: Yes (Other)
  Sender: FDA-Public Use
  Company Number: CN-MYLANLABS-2017M1009465

PATIENT

DRUGS (3)
  1. DACARBAZINE. [Suspect]
     Active Substance: DACARBAZINE
     Indication: DESMOID TUMOUR
     Dosage: 150 MG/M 2 DAILY DRIP FOR FOUR DAYS AT EVERY 28 DAYS
     Route: 041
     Dates: start: 20121011
  2. MELOXICAM. [Suspect]
     Active Substance: MELOXICAM
     Indication: DESMOID TUMOUR
     Dosage: 10 MG/M 2
     Route: 065
     Dates: start: 20121011
  3. DOXORUBICIN [Suspect]
     Active Substance: DOXORUBICIN
     Indication: DESMOID TUMOUR
     Dosage: 20 MG/M2 DAILY
     Route: 065
     Dates: start: 20121011

REACTIONS (1)
  - Intestinal perforation [Recovered/Resolved]
